FAERS Safety Report 20443373 (Version 1)
Quarter: 2022Q1

REPORT INFORMATION
  Report Type: Spontaneous
  Country: US (occurrence: None)
  Receive Date: 20220208
  Receipt Date: 20220208
  Transmission Date: 20220423
  Serious: Yes (Other)
  Sender: FDA-Public Use
  Company Number: 2022A055524

PATIENT
  Age: 72 Year

DRUGS (1)
  1. SYMBICORT [Suspect]
     Active Substance: BUDESONIDE\FORMOTEROL FUMARATE DIHYDRATE
     Route: 055

REACTIONS (5)
  - Mitral valve disease [Unknown]
  - Liver disorder [Unknown]
  - Asthma [Unknown]
  - Product dose omission issue [Unknown]
  - Inability to afford medication [Unknown]
